FAERS Safety Report 14996463 (Version 1)
Quarter: 2018Q2

REPORT INFORMATION
  Report Type: Spontaneous
  Country: US (occurrence: US)
  Receive Date: 20180522
  Receipt Date: 20180522
  Transmission Date: 20180711
  Serious: Yes (Hospitalization, Other)
  Sender: FDA-Public Use
  Company Number: None

PATIENT
  Age: 26 Year
  Sex: Female

DRUGS (2)
  1. OLANZAPINE. [Suspect]
     Active Substance: OLANZAPINE
     Indication: PSYCHOTIC DISORDER
     Route: 048
  2. LORAZEPAM. [Suspect]
     Active Substance: LORAZEPAM
     Indication: AGITATION
     Dosage: ?          OTHER FREQUENCY:STAT;?
     Route: 030
     Dates: start: 20180417, end: 20180417

REACTIONS (9)
  - Emotional distress [None]
  - Heart rate decreased [None]
  - Agitation [None]
  - Investigation noncompliance [None]
  - Blood pressure decreased [None]
  - Unresponsive to stimuli [None]
  - Syncope [None]
  - Somnolence [None]
  - Depressed level of consciousness [None]

NARRATIVE: CASE EVENT DATE: 20180417
